FAERS Safety Report 5405602-1 (Version None)
Quarter: 2007Q3

REPORT INFORMATION
  Report Type: 
  Country: None (occurrence: None)
  Receive Date: 20070806
  Receipt Date: 20070727
  Transmission Date: 20080115
  Serious: Yes (Hospitalization, Other)
  Sender: FDA-Public Use
  Company Number: PHBS2007AT12128

PATIENT

DRUGS (6)
  1. STALEVO 100 [Suspect]
     Indication: PARKINSON'S DISEASE
     Dosage: 150 MG, TID
     Route: 048
  2. SIFROL [Concomitant]
     Dosage: 0.35 MG, BID
  3. PK-MERZ [Concomitant]
     Dosage: 1 DF, BID
  4. TRITACE [Concomitant]
     Dosage: 1.25 MG, QD
  5. NOVALGIN /SCH/ [Concomitant]
     Dosage: 500 MG, QD
  6. ACIMETHIN [Concomitant]
     Dosage: 1 DF, TID

REACTIONS (2)
  - GAMMA-GLUTAMYLTRANSFERASE INCREASED [None]
  - MULTIPLE INJURIES [None]
